FAERS Safety Report 24131706 (Version 1)
Quarter: 2024Q3

REPORT INFORMATION
  Report Type: Spontaneous
  Country: US (occurrence: US)
  Receive Date: 20240724
  Receipt Date: 20240724
  Transmission Date: 20241016
  Serious: No
  Sender: TEVA
  Company Number: US-TEVA-VS-3221121

PATIENT
  Age: 77 Year
  Sex: Female
  Weight: 88.45 kg

DRUGS (1)
  1. QVAR REDIHALER [Suspect]
     Active Substance: BECLOMETHASONE DIPROPIONATE
     Indication: Product used for unknown indication
     Dosage: 2 PUFFS OF THE QVAR REDIHALER 40 MCG TWICE A DAY
     Route: 065

REACTIONS (3)
  - Glossodynia [Not Recovered/Not Resolved]
  - Wrong technique in device usage process [Unknown]
  - Oral pain [Not Recovered/Not Resolved]

NARRATIVE: CASE EVENT DATE: 20240601
